FAERS Safety Report 8163064-8 (Version None)
Quarter: 2012Q1

REPORT INFORMATION
  Report Type: 
  Country: None (occurrence: None)
  Receive Date: 20120224
  Receipt Date: 20120221
  Transmission Date: 20120608
  Serious: Yes (Hospitalization)
  Sender: FDA-Public Use
  Company Number: US-GLAXOSMITHKLINE-A0889202A

PATIENT
  Age: 48 Year
  Sex: Female
  Weight: 116.8 kg

DRUGS (6)
  1. METFORMIN HCL [Concomitant]
  2. TOPROL-XL [Concomitant]
  3. COZAAR [Concomitant]
  4. LIPITOR [Concomitant]
  5. AVANDIA [Suspect]
     Indication: TYPE 2 DIABETES MELLITUS
     Dosage: 8MG PER DAY
     Route: 048
     Dates: start: 20030101
  6. INSULIN [Concomitant]

REACTIONS (2)
  - STENT PLACEMENT [None]
  - CARDIAC FAILURE CONGESTIVE [None]
